FAERS Safety Report 12218457 (Version 1)
Quarter: 2016Q1

REPORT INFORMATION
  Report Type: Spontaneous
  Country: US (occurrence: US)
  Receive Date: 20160329
  Receipt Date: 20160329
  Transmission Date: 20160526
  Serious: Yes (Other)
  Sender: FDA-Public Use
  Company Number: US-MYLANLABS-2016M1012929

PATIENT

DRUGS (2)
  1. TOPAMAX [Suspect]
     Active Substance: TOPIRAMATE
  2. VALPROIC ACID. [Suspect]
     Active Substance: VALPROIC ACID

REACTIONS (5)
  - Ammonia increased [Recovered/Resolved]
  - Drug interaction [Recovered/Resolved]
  - Liver disorder [Recovered/Resolved]
  - Brain oedema [Recovered/Resolved]
  - Confusional state [Recovered/Resolved]
